FAERS Safety Report 6666319-9 (Version None)
Quarter: 2010Q2

REPORT INFORMATION
  Report Type: 
  Country: None (occurrence: None)
  Receive Date: 20100402
  Receipt Date: 20100323
  Transmission Date: 20101027
  Serious: Yes (Hospitalization)
  Sender: FDA-Public Use
  Company Number: IT-ELI_LILLY_AND_COMPANY-IT201003006597

PATIENT
  Sex: Female

DRUGS (5)
  1. CYMBALTA [Suspect]
     Indication: DEPRESSION
     Dosage: 60 MG, DAILY (1/D)
     Route: 048
     Dates: start: 20090601, end: 20100312
  2. CORTONE [Concomitant]
     Dosage: UNK, UNKNOWN
     Route: 048
  3. LANSOPRAZOLE [Concomitant]
     Dosage: 30 MG, DAILY (1/D)
  4. ASPIRIN [Concomitant]
     Dosage: 100 MG, DAILY (1/D)
  5. NEO-LOTAN PLUS [Concomitant]
     Dosage: 100MG+25MG, UNKNOWN

REACTIONS (1)
  - CHOLANGITIS [None]
